FAERS Safety Report 7706575-9 (Version None)
Quarter: 2011Q3

REPORT INFORMATION
  Report Type: 
  Country: None (occurrence: None)
  Receive Date: 20110824
  Receipt Date: 20110610
  Transmission Date: 20111222
  Serious: No
  Sender: FDA-Public Use
  Company Number: US-BAYER-2011-050559

PATIENT
  Sex: Female

DRUGS (2)
  1. AMOXICILLIN [Concomitant]
     Indication: EAR INFECTION
  2. MIRENA [Suspect]
     Dosage: 20 MCG/24HR, CONT
     Route: 015

REACTIONS (1)
  - EAR INFECTION [None]
